FAERS Safety Report 9311565 (Version 1)
Quarter: 2013Q2

REPORT INFORMATION
  Report Type: Spontaneous
  Country: US (occurrence: US)
  Receive Date: 20130528
  Receipt Date: 20130528
  Transmission Date: 20140414
  Serious: Yes (Other)
  Sender: FDA-Public Use
  Company Number: US-BAYER-2013-063389

PATIENT
  Age: 48 Year
  Sex: Female

DRUGS (1)
  1. BEYAZ [Suspect]
     Indication: CONTRACEPTION
     Dosage: 3MG/0.02MG/0.451MG AND 0.451
     Route: 048
     Dates: start: 20130301

REACTIONS (9)
  - Varicose vein [None]
  - Muscle spasms [None]
  - Inappropriate schedule of drug administration [None]
  - Irritability [None]
  - Anxiety [None]
  - Tearfulness [None]
  - Stress [None]
  - Pregnancy on oral contraceptive [None]
  - Menstruation delayed [None]
